FAERS Safety Report 13457511 (Version 4)
Quarter: 2017Q4

REPORT INFORMATION
  Report Type: Report from Study
  Country: JP (occurrence: JP)
  Receive Date: 20170419
  Receipt Date: 20171205
  Transmission Date: 20180320
  Serious: Yes (Hospitalization)
  Sender: FDA-Public Use
  Company Number: JP-JNJFOC-20170417698

PATIENT
  Age: 31 Year
  Sex: Male
  Weight: 58 kg

DRUGS (4)
  1. YONDELIS [Suspect]
     Active Substance: TRABECTEDIN
     Indication: EXTRA-OSSEOUS EWING^S SARCOMA METASTATIC
     Dosage: 1.5 MG/BODY
     Route: 041
     Dates: start: 20160407
  2. DEXAMETHASONE. [Concomitant]
     Active Substance: DEXAMETHASONE
     Indication: PREMEDICATION
     Route: 065
     Dates: start: 20160316
  3. YONDELIS [Suspect]
     Active Substance: TRABECTEDIN
     Indication: EXTRA-OSSEOUS EWING^S SARCOMA METASTATIC
     Dosage: 2.0 MG/BODY; EVERY 3 WEEKS, A 24-HOUR INFUSION
     Route: 041
     Dates: start: 20160316
  4. HALAVEN [Concomitant]
     Active Substance: ERIBULIN MESYLATE
     Indication: EXTRA-OSSEOUS EWING^S SARCOMA METASTATIC
     Route: 042
     Dates: start: 20160428, end: 20160519

REACTIONS (11)
  - Bacteraemia [Recovered/Resolved]
  - Hepatic function abnormal [Recovered/Resolved]
  - Haemoglobin decreased [Recovered/Resolved]
  - Haematuria [Recovered/Resolved]
  - Epistaxis [Recovered/Resolved]
  - Neuropathy peripheral [Not Recovered/Not Resolved]
  - Neutrophil count decreased [Recovered/Resolved]
  - Mucous membrane disorder [Recovered/Resolved]
  - Platelet count decreased [Recovered/Resolved]
  - White blood cell count decreased [Recovered/Resolved]
  - Herpes zoster [Recovered/Resolved]

NARRATIVE: CASE EVENT DATE: 20160318
